FAERS Safety Report 7514829-4 (Version None)
Quarter: 2011Q2

REPORT INFORMATION
  Report Type: 
  Country: None (occurrence: None)
  Receive Date: 20110422
  Receipt Date: 20100525
  Transmission Date: 20111010
  Serious: Yes (Hospitalization)
  Sender: FDA-Public Use
  Company Number: WAES 1005USA03793

PATIENT
  Age: 14 Year
  Sex: Male

DRUGS (3)
  1. ABILIFY [Concomitant]
  2. SINGULAIR [Suspect]
     Indication: ASTHMA
     Dosage: 5 MG/PO
     Route: 048
     Dates: start: 20090501
  3. ADVAIR DISKUS 100/50 [Concomitant]

REACTIONS (1)
  - DEPRESSION [None]
